FAERS Safety Report 13884442 (Version 1)
Quarter: 2017Q3

REPORT INFORMATION
  Report Type: Spontaneous
  Country: US (occurrence: None)
  Receive Date: 20170815
  Receipt Date: 20170815
  Transmission Date: 20171127
  Serious: No
  Sender: FDA-Public Use
  Company Number: None

PATIENT
  Age: 41 Year
  Sex: Female

DRUGS (1)
  1. NORETHINDRONE ACE [Suspect]
     Active Substance: NORETHINDRONE ACETATE
     Route: 048

REACTIONS (1)
  - Dizziness [None]

NARRATIVE: CASE EVENT DATE: 20170808
